FAERS Safety Report 7605232-7 (Version None)
Quarter: 2011Q3

REPORT INFORMATION
  Report Type: 
  Country: None (occurrence: None)
  Receive Date: 20110713
  Receipt Date: 20110629
  Transmission Date: 20111222
  Serious: Yes (Other)
  Sender: FDA-Public Use
  Company Number: DE-RANBAXY-2011RR-45964

PATIENT
  Sex: Female

DRUGS (5)
  1. GABAPENTIN BASICS 600 MG FILMTABLETTEN [Suspect]
     Indication: NEUROPATHY PERIPHERAL
     Dosage: 600 MG, BID
     Route: 065
  2. METOPROLOL TARTRATE [Concomitant]
     Indication: PRODUCT USED FOR UNKNOWN INDICATION
     Dosage: 25 MG, BID
     Route: 065
  3. RESTEX 100MG [Concomitant]
     Indication: RESTLESS LEGS SYNDROME
     Dosage: 100 MG, UNK
     Route: 065
  4. PRAMIPEXOLE DIHYCHLLORIDE [Concomitant]
     Indication: RESTLESS LEGS SYNDROME
     Dosage: 0.38 MG, UNK
     Route: 065
  5. SIMVASTATIN [Concomitant]
     Indication: PRODUCT USED FOR UNKNOWN INDICATION
     Dosage: 10 MG, QD
     Route: 065

REACTIONS (4)
  - SKIN ULCER [None]
  - RASH PUSTULAR [None]
  - GINGIVITIS [None]
  - APHTHOUS STOMATITIS [None]
